FAERS Safety Report 5806754-1 (Version None)
Quarter: 2008Q3

REPORT INFORMATION
  Report Type: 
  Country: None (occurrence: None)
  Receive Date: 20080709
  Receipt Date: 20080709
  Transmission Date: 20090109
  Serious: Yes (Death)
  Sender: FDA-Public Use
  Company Number: None

PATIENT
  Age: 93 Year
  Sex: Female
  Weight: 55.7924 kg

DRUGS (1)
  1. DIGITEK ACTAVIS TOTOWA LLC [Suspect]
     Indication: CARDIAC VALVE DISEASE
     Dosage: INJ
     Dates: start: 20061217, end: 20071231

REACTIONS (12)
  - ASTHENIA [None]
  - CARDIAC FAILURE [None]
  - DISCOMFORT [None]
  - DIZZINESS [None]
  - FEELING ABNORMAL [None]
  - FLUID RETENTION [None]
  - GASTROINTESTINAL DISORDER [None]
  - GENERAL PHYSICAL HEALTH DETERIORATION [None]
  - HYPOTENSION [None]
  - NAUSEA [None]
  - QUALITY OF LIFE DECREASED [None]
  - RENAL FAILURE ACUTE [None]
